FAERS Safety Report 16903536 (Version 3)
Quarter: 2021Q2

REPORT INFORMATION
  Report Type: Spontaneous
  Country: US (occurrence: US)
  Receive Date: 20191010
  Receipt Date: 20210609
  Transmission Date: 20210716
  Serious: No
  Sender: FDA-Public Use
  Company Number: US-PFIZER INC-2019436361

PATIENT
  Age: 54 Year
  Sex: Female
  Weight: 68.93 kg

DRUGS (6)
  1. AMBIEN PRN [Concomitant]
     Dosage: UNK
     Dates: start: 2015
  2. PREMARIN [Suspect]
     Active Substance: ESTROGENS, CONJUGATED
     Dosage: 0.45 MG
  3. VITAMIN B12 [Concomitant]
     Active Substance: CYANOCOBALAMIN
     Dosage: UNK
     Dates: start: 201811
  4. FLEXERIL [Concomitant]
     Active Substance: CYCLOBENZAPRINE HYDROCHLORIDE
     Dosage: UNK
     Dates: start: 2015
  5. PREMARIN [Suspect]
     Active Substance: ESTROGENS, CONJUGATED
     Dosage: UNK
  6. PREMARIN [Suspect]
     Active Substance: ESTROGENS, CONJUGATED
     Dosage: 0.625 MG

REACTIONS (6)
  - Musculoskeletal disorder [Not Recovered/Not Resolved]
  - Nipple pain [Unknown]
  - Product prescribing issue [Unknown]
  - Crying [Unknown]
  - Breast enlargement [Unknown]
  - Fatigue [Unknown]
